FAERS Safety Report 16885915 (Version 1)
Quarter: 2019Q4

REPORT INFORMATION
  Report Type: Spontaneous
  Country: US (occurrence: US)
  Receive Date: 20191004
  Receipt Date: 20191004
  Transmission Date: 20200122
  Serious: Yes (Hospitalization)
  Sender: FDA-Public Use
  Company Number: US-ASTRAZENECA-2019SF37618

PATIENT
  Age: 878 Month
  Sex: Female

DRUGS (26)
  1. AROMASIN [Suspect]
     Active Substance: EXEMESTANE
     Indication: BREAST CANCER FEMALE
     Route: 048
     Dates: start: 20190514, end: 20190718
  2. PROVENTIL [Concomitant]
     Active Substance: ALBUTEROL
  3. ATIVAN [Concomitant]
     Active Substance: LORAZEPAM
  4. PRED FORTE [Concomitant]
     Active Substance: PREDNISOLONE ACETATE
  5. SYNTHROID [Concomitant]
     Active Substance: LEVOTHYROXINE SODIUM
  6. LOPRESSOR [Concomitant]
     Active Substance: METOPROLOL TARTRATE
  7. COMPAZINE [Concomitant]
     Active Substance: PROCHLORPERAZINE MALEATE
  8. AFINITOR [Concomitant]
     Active Substance: EVEROLIMUS
  9. ZOVIRAX [Concomitant]
     Active Substance: ACYCLOVIR
  10. ROCALTROL [Concomitant]
     Active Substance: CALCITRIOL
  11. OSCAL+D 500 [Concomitant]
  12. BANOPHEN [Concomitant]
     Active Substance: DIPHENHYDRAMINE HYDROCHLORIDE
  13. CYMBALTA [Concomitant]
     Active Substance: DULOXETINE HYDROCHLORIDE
  14. CLARITIN [Concomitant]
     Active Substance: LORATADINE
  15. ZOFRAN [Concomitant]
     Active Substance: ONDANSETRON HYDROCHLORIDE
  16. AROMASIN [Suspect]
     Active Substance: EXEMESTANE
     Indication: BREAST CANCER FEMALE
     Route: 048
     Dates: start: 20190822
  17. DECADRON [Concomitant]
     Active Substance: DEXAMETHASONE
  18. COUMADIN [Concomitant]
     Active Substance: WARFARIN SODIUM
  19. VENTOLIN HFA [Concomitant]
     Active Substance: ALBUTEROL SULFATE
  20. NEXIUM [Suspect]
     Active Substance: ESOMEPRAZOLE MAGNESIUM
     Route: 048
  21. ACLOVATE [Concomitant]
     Active Substance: ALCLOMETASONE DIPROPIONATE
  22. BUMEX [Concomitant]
     Active Substance: BUMETANIDE
  23. PRILOSEC [Suspect]
     Active Substance: OMEPRAZOLE MAGNESIUM
     Route: 048
  24. DURAGESIC [Concomitant]
     Active Substance: FENTANYL
  25. MAG-OX [Concomitant]
     Active Substance: MAGNESIUM OXIDE
  26. ROXICODONE [Concomitant]
     Active Substance: OXYCODONE HYDROCHLORIDE

REACTIONS (1)
  - Herpes zoster [Recovered/Resolved]

NARRATIVE: CASE EVENT DATE: 201907
